FAERS Safety Report 8605821-7 (Version None)
Quarter: 2012Q3

REPORT INFORMATION
  Report Type: 
  Country: None (occurrence: None)
  Receive Date: 20120820
  Receipt Date: 20120813
  Transmission Date: 20120928
  Serious: Yes (Other)
  Sender: FDA-Public Use
  Company Number: US-GLAXOSMITHKLINE-A0989382A

PATIENT
  Age: 37 Year
  Sex: Male

DRUGS (2)
  1. REQUIP [Suspect]
     Indication: RESTLESS LEGS SYNDROME
     Dosage: .1MG THREE TIMES PER DAY
     Route: 048
  2. PROZAC [Concomitant]

REACTIONS (4)
  - ILL-DEFINED DISORDER [None]
  - SYNCOPE [None]
  - ANAEMIA [None]
  - RIB FRACTURE [None]
